FAERS Safety Report 9321340 (Version 1)
Quarter: 2013Q2

REPORT INFORMATION
  Report Type: Spontaneous
  Country: US (occurrence: US)
  Receive Date: 20130531
  Receipt Date: 20130531
  Transmission Date: 20140414
  Serious: Yes (Hospitalization)
  Sender: FDA-Public Use
  Company Number: US-PFIZER INC-2013164090

PATIENT
  Age: 59 Year
  Sex: Female

DRUGS (16)
  1. CHANTIX [Suspect]
     Dosage: UNK
  2. SPIRIVA [Suspect]
     Dosage: 18 UG, 1X/DAY
     Route: 055
  3. DETROL LA [Suspect]
     Dosage: 4 MG, 1X/DAY
     Route: 048
  4. ATENOLOL [Suspect]
     Dosage: 50 MG, 1X/DAY
     Route: 048
  5. GABAPENTIN [Suspect]
     Dosage: 600 MG, 2X/DAY, AS NEEDED
     Route: 048
  6. METFORMIN HCL [Suspect]
     Dosage: 1 DF, 2X/DAY
     Route: 048
  7. PRILOSEC [Concomitant]
     Dosage: 20 MG, 1X/DAY
     Route: 048
  8. LOVASTATIN [Concomitant]
     Dosage: 20 MG, AT BEDTIME
     Route: 048
  9. ALBUTEROL SULFATE [Concomitant]
     Dosage: 2.5 MG/3 ML, INHALATION AS NEEDED
     Route: 055
  10. ADVAIR DISKUS [Concomitant]
     Dosage: 1 PUFF INHALATION TWICE A DAY
     Route: 055
  11. NICOTINE [Concomitant]
     Dosage: 14 MG, 1X/DAY
     Route: 062
  12. LISINOPRIL W/HYDROCHLOROTHIAZIDE [Concomitant]
     Dosage: 1 DF, 1X/DAY
     Route: 048
  13. ATIVAN [Concomitant]
     Dosage: 0.5 MG TABLET, 1 TABLET AT BEDTIME AS NEEDED, THREE TIMES A DAY AS NEEDED
     Route: 048
  14. TRAZODONE HYDROCHLORIDE [Concomitant]
     Dosage: 50 MG, AT BEDTIME AS NEEDED
     Route: 048
  15. CYMBALTA [Concomitant]
     Dosage: 60 MG, 1X/DAY
     Route: 048
  16. TRIAMCINOLONE [Concomitant]
     Dosage: 0.1 % CREAM, 1APPLLICATION, 2X/DAY
     Route: 061

REACTIONS (2)
  - Lobar pneumonia [Unknown]
  - Chronic obstructive pulmonary disease [Unknown]
